FAERS Safety Report 24561946 (Version 1)
Quarter: 2024Q4

REPORT INFORMATION
  Report Type: Spontaneous
  Country: CN (occurrence: CN)
  Receive Date: 20241029
  Receipt Date: 20241029
  Transmission Date: 20250115
  Serious: Yes (Hospitalization)
  Sender: PFIZER
  Company Number: CN-PFIZER INC-PV202400138924

PATIENT
  Age: 74 Year
  Sex: Female
  Weight: 63 kg

DRUGS (3)
  1. AZITHROMYCIN [Suspect]
     Active Substance: AZITHROMYCIN
     Indication: Pneumonia bacterial
     Dosage: 0.5 G, 1X/DAY
     Route: 048
     Dates: start: 20240828, end: 20240916
  2. RIFABUTIN [Suspect]
     Active Substance: RIFABUTIN
     Indication: Pneumonia bacterial
     Dosage: 0.3 G, 1X/DAY
     Route: 048
     Dates: start: 20240828, end: 20240916
  3. ETHAMBUTOL HYDROCHLORIDE [Suspect]
     Active Substance: ETHAMBUTOL HYDROCHLORIDE
     Indication: Pneumonia bacterial
     Dosage: 0.75 G, 1X/DAY
     Route: 048
     Dates: start: 20240828, end: 20240916

REACTIONS (4)
  - Abdominal discomfort [Recovering/Resolving]
  - Chest discomfort [Recovering/Resolving]
  - Tachypnoea [Recovering/Resolving]
  - Off label use [Unknown]

NARRATIVE: CASE EVENT DATE: 20240828
